FAERS Safety Report 17392081 (Version 1)
Quarter: 2020Q1

REPORT INFORMATION
  Report Type: Spontaneous
  Country: CA (occurrence: CA)
  Receive Date: 20200207
  Receipt Date: 20200207
  Transmission Date: 20200409
  Serious: Yes (Other)
  Sender: FDA-Public Use
  Company Number: CA-009507513-2002CAN001680

PATIENT
  Age: 52 Year
  Sex: Male
  Weight: 70 kg

DRUGS (3)
  1. SINGULAIR [Suspect]
     Active Substance: MONTELUKAST SODIUM
     Indication: ASTHMA
     Dosage: 12 MILLIGRAM, 1 EVER 1 DAYS
     Route: 048
  2. COLCHICINE. [Concomitant]
     Active Substance: COLCHICINE
     Dosage: UNK
  3. ALVESCO [Concomitant]
     Active Substance: CICLESONIDE
     Dosage: UNK

REACTIONS (4)
  - Skin exfoliation [Recovered/Resolved]
  - Rash papular [Recovered/Resolved]
  - Scab [Recovered/Resolved]
  - Peripheral swelling [Recovered/Resolved]
